FAERS Safety Report 5202295-3 (Version None)
Quarter: 2007Q1

REPORT INFORMATION
  Report Type: 
  Country: None (occurrence: None)
  Receive Date: 20070109
  Receipt Date: 20070102
  Transmission Date: 20070707
  Serious: Yes (Death, Life-Threatening)
  Sender: FDA-Public Use
  Company Number: PHNR2007AU00446

PATIENT
  Age: 51 Year
  Sex: Female

DRUGS (1)
  1. CLOZARIL [Suspect]
     Dosage: 12.5 - 1000MG/DAY
     Dates: start: 19970522

REACTIONS (3)
  - CHOKING [None]
  - LIFE SUPPORT [None]
  - RESUSCITATION [None]
